FAERS Safety Report 6053200-1 (Version None)
Quarter: 2009Q1

REPORT INFORMATION
  Report Type: 
  Country: None (occurrence: None)
  Receive Date: 20090122
  Receipt Date: 20090106
  Transmission Date: 20090719
  Serious: Yes (Death)
  Sender: FDA-Public Use
  Company Number: PAR_02493_2009

PATIENT
  Age: 53 Year
  Sex: Male

DRUGS (3)
  1. IBUPROFEN [Suspect]
     Indication: COMPLETED SUICIDE
     Dosage: (DF ORAL)
     Route: 048
  2. ACETAMINOPHEN [Suspect]
     Indication: COMPLETED SUICIDE
     Dosage: (DF ORAL)
     Route: 048
  3. UNKNOWN DRUG [Suspect]
     Indication: COMPLETED SUICIDE
     Dosage: (DF ORAL)
     Route: 048

REACTIONS (4)
  - CARDIAC ARREST [None]
  - COMPLETED SUICIDE [None]
  - MULTIPLE DRUG OVERDOSE INTENTIONAL [None]
  - RESPIRATORY ARREST [None]
